FAERS Safety Report 12818968 (Version 2)
Quarter: 2019Q4

REPORT INFORMATION
  Report Type: Spontaneous
  Country: US (occurrence: US)
  Receive Date: 20161006
  Receipt Date: 20191021
  Transmission Date: 20200122
  Serious: Yes (Other)
  Sender: FDA-Public Use
  Company Number: US-TEVA-698870USA

PATIENT
  Sex: Female

DRUGS (2)
  1. AVONEX [Suspect]
     Active Substance: INTERFERON BETA-1A
     Route: 065
  2. COPAXONE [Suspect]
     Active Substance: GLATIRAMER ACETATE
     Indication: MULTIPLE SCLEROSIS
     Dosage: UNKNOWN FORM STRENGTH
     Route: 058

REACTIONS (6)
  - Multiple sclerosis relapse [Recovered/Resolved]
  - Live birth [Unknown]
  - Adverse event [Recovered/Resolved]
  - Bedridden [Recovered/Resolved]
  - Maternal exposure during pregnancy [Unknown]
  - Neuralgia [Unknown]
